FAERS Safety Report 4279605-7 (Version None)
Quarter: 2004Q1

REPORT INFORMATION
  Report Type: 
  Country: None (occurrence: None)
  Receive Date: 20040123
  Receipt Date: 20040119
  Transmission Date: 20041129
  Serious: Yes (Hospitalization)
  Sender: FDA-Public Use
  Company Number: TCI2003A04400

PATIENT
  Age: 62 Year
  Sex: Female

DRUGS (7)
  1. ACTOS [Suspect]
     Indication: DIABETES MELLITUS
     Dosage: 15 MG (15 MG 1 IN 1 D) PER ORAL
     Route: 048
     Dates: start: 20010827, end: 20031112
  2. ALPRAZOLAM [Concomitant]
  3. BLOPRESS (CANDESARTAN CILEXETIL) [Concomitant]
  4. GLIMEPIRIDE [Concomitant]
  5. ALACEPRIL [Concomitant]
  6. AMLODIPINE BESYLATE [Concomitant]
  7. DIPYRIDAMOLE [Concomitant]

REACTIONS (6)
  - COLON CANCER [None]
  - EYELID OEDEMA [None]
  - MALIGNANT PLEURAL EFFUSION [None]
  - OEDEMA PERIPHERAL [None]
  - OLIGURIA [None]
  - URINE FLOW DECREASED [None]
